FAERS Safety Report 16376376 (Version 2)
Quarter: 2019Q2

REPORT INFORMATION
  Report Type: Spontaneous
  Country: DE (occurrence: DE)
  Receive Date: 20190531
  Receipt Date: 20190613
  Transmission Date: 20190711
  Serious: Yes (Other)
  Sender: FDA-Public Use
  Company Number: DE-SA-2019SA146639

PATIENT
  Age: 67 Year
  Sex: Male

DRUGS (6)
  1. LANTUS [Suspect]
     Active Substance: INSULIN GLARGINE
     Dosage: DOSED AFTER BLOOD SUGAR LEVEL
  2. ACETYLSALICYLIC ACID [Suspect]
     Active Substance: ASPIRIN
     Dosage: 100 MG, QD
  3. AMLODIPINE [Suspect]
     Active Substance: AMLODIPINE BESYLATE
     Dosage: 10 MG, QD
  4. FOLSAEURE [Suspect]
     Active Substance: FOLIC ACID
     Dosage: 5 MG, QW
  5. HUMULIN NOS [Suspect]
     Active Substance: INSULIN HUMAN
     Dosage: DOSED AFTER BLOOD SUGAR LEVEL
  6. METHOTREXATE. [Suspect]
     Active Substance: METHOTREXATE
     Indication: PSORIASIS
     Dosage: 12.5 MG, QW
     Dates: start: 201503

REACTIONS (1)
  - Leishmaniasis [Not Recovered/Not Resolved]
